FAERS Safety Report 8103564-X (Version None)
Quarter: 2012Q1

REPORT INFORMATION
  Report Type: 
  Country: None (occurrence: None)
  Receive Date: 20120201
  Receipt Date: 20120131
  Transmission Date: 20120608
  Serious: No
  Sender: FDA-Public Use
  Company Number: PHEH2012US002689

PATIENT
  Sex: Male

DRUGS (7)
  1. PRILOSEC [Suspect]
  2. VITAMIN D [Concomitant]
  3. ASPIRIN [Concomitant]
  4. TASIGNA [Suspect]
     Indication: CHRONIC MYELOID LEUKAEMIA
     Dosage: 150 MG, BID
     Route: 048
     Dates: end: 20120129
  5. LOVAZA [Concomitant]
     Indication: BLOOD CHOLESTEROL
  6. MULTI-VITAMIN [Concomitant]
  7. LISINOPRIL [Concomitant]
     Indication: HYPERTENSION

REACTIONS (2)
  - SKIN DISORDER [None]
  - RASH PRURITIC [None]
